FAERS Safety Report 9435320 (Version 1)
Quarter: 2013Q3

REPORT INFORMATION
  Report Type: Spontaneous
  Country: US (occurrence: None)
  Receive Date: 20130730
  Receipt Date: 20130730
  Transmission Date: 20140515
  Serious: No
  Sender: FDA-Public Use
  Company Number: TCI2013A04369

PATIENT
  Sex: 0

DRUGS (1)
  1. NESINA TABLETS 25 MG (ALOGLIPTIN BENZOATE) [Suspect]
     Route: 048

REACTIONS (1)
  - Pancreatitis acute [None]
